FAERS Safety Report 9169836 (Version 1)
Quarter: 2013Q1

REPORT INFORMATION
  Report Type: Spontaneous
  Country: CH (occurrence: CH)
  Receive Date: 20130319
  Receipt Date: 20130319
  Transmission Date: 20140127
  Serious: Yes (Other)
  Sender: FDA-Public Use
  Company Number: PHHY2013CH025449

PATIENT
  Sex: 0

DRUGS (1)
  1. DICLOFENAC [Suspect]
     Dosage: UNK UKN, UNK

REACTIONS (2)
  - Joint dislocation [Unknown]
  - Foetal exposure during pregnancy [Unknown]
